FAERS Safety Report 7331391-X (Version None)
Quarter: 2011Q1

REPORT INFORMATION
  Report Type: 
  Country: None (occurrence: None)
  Receive Date: 20110304
  Receipt Date: 20110221
  Transmission Date: 20110831
  Serious: Yes (Hospitalization, Other)
  Sender: FDA-Public Use
  Company Number: US-PAR PHARMACEUTICAL, INC-2011SCPR002705

PATIENT
  Age: 36 Year
  Sex: Female

DRUGS (5)
  1. VENLAFAXINE [Suspect]
     Indication: DEPRESSION
     Dosage: UNK
     Route: 065
  2. IMIPRAMINE [Suspect]
     Indication: HEADACHE
     Dosage: UNK
     Route: 065
  3. LINEZOLID [Suspect]
     Indication: STAPHYLOCOCCAL INFECTION
  4. LITHIUM [Suspect]
     Indication: BIPOLAR DISORDER
     Dosage: UNK
     Route: 065
  5. LINEZOLID [Suspect]
     Indication: EMPYEMA
     Dosage: UNK
     Route: 065

REACTIONS (2)
  - DRUG INTERACTION [None]
  - SEROTONIN SYNDROME [None]
